FAERS Safety Report 22690468 (Version 16)
Quarter: 2024Q2

REPORT INFORMATION
  Report Type: Report from Study
  Country: US (occurrence: US)
  Receive Date: 20230711
  Receipt Date: 20240607
  Transmission Date: 20240716
  Serious: Yes (Other)
  Sender: FDA-Public Use
  Company Number: US-TAKEDA-2021TUS036334

PATIENT
  Age: 42 Year
  Sex: Male
  Weight: 98 kg

DRUGS (26)
  1. HUMAN IMMUNOGLOBULIN G [Suspect]
     Active Substance: HUMAN IMMUNOGLOBULIN G
     Indication: Multifocal motor neuropathy
     Dosage: 180 GRAM, Q4WEEKS
     Route: 042
     Dates: start: 20210525
  2. HUMAN IMMUNOGLOBULIN G [Suspect]
     Active Substance: HUMAN IMMUNOGLOBULIN G
     Indication: Parkinson^s disease
     Dosage: 50 GRAM
     Route: 042
  3. BENADRYL [Suspect]
     Active Substance: DIPHENHYDRAMINE HYDROCHLORIDE
     Indication: Product used for unknown indication
     Dosage: UNK
     Route: 042
  4. DIPHENHYDRAMINE [Concomitant]
     Active Substance: DIPHENHYDRAMINE
     Dosage: UNK
     Route: 065
  5. SOOLANTRA [Concomitant]
     Active Substance: IVERMECTIN
     Dosage: UNK
     Route: 065
  6. KETOCONAZOLE [Concomitant]
     Active Substance: KETOCONAZOLE
     Dosage: UNK
     Route: 065
  7. SODIUM CHLORIDE [Concomitant]
     Active Substance: SODIUM CHLORIDE
     Dosage: UNK
     Route: 065
  8. EPINEPHRINE [Concomitant]
     Active Substance: EPINEPHRINE
     Dosage: UNK
     Route: 065
  9. AMLODIPINE BESYLATE [Concomitant]
     Active Substance: AMLODIPINE BESYLATE
     Dosage: UNK
     Route: 065
  10. NURTEC ODT [Concomitant]
     Active Substance: RIMEGEPANT SULFATE
     Dosage: UNK
     Route: 065
  11. ZYRTEC [Concomitant]
     Active Substance: CETIRIZINE HYDROCHLORIDE
     Dosage: UNK
     Route: 065
  12. PFIZER-BIONTECH COVID-19 VACCINE [Concomitant]
     Active Substance: TOZINAMERAN
     Dosage: UNK
     Route: 065
  13. ACETAMINOPHEN [Concomitant]
     Active Substance: ACETAMINOPHEN
     Dosage: UNK
     Route: 065
  14. PROZAC [Concomitant]
     Active Substance: FLUOXETINE HYDROCHLORIDE
     Dosage: UNK
     Route: 065
  15. SODIUM CHLORIDE [Concomitant]
     Active Substance: SODIUM CHLORIDE
     Dosage: UNK
     Route: 065
  16. HEPARIN [Concomitant]
     Active Substance: HEPARIN SODIUM
     Dosage: UNK
     Route: 065
  17. LIDOCAINE [Concomitant]
     Active Substance: LIDOCAINE
     Dosage: UNK
     Route: 065
  18. IBUPROFEN [Concomitant]
     Active Substance: IBUPROFEN
     Dosage: UNK
     Route: 065
  19. SUMATRIPTAN SUCCINATE [Concomitant]
     Active Substance: SUMATRIPTAN SUCCINATE
     Dosage: UNK
     Route: 065
  20. OXYCODONE AND ACETAMINOPHEN [Concomitant]
     Active Substance: ACETAMINOPHEN\OXYCODONE HYDROCHLORIDE
     Dosage: UNK
     Route: 065
  21. Lmx [Concomitant]
     Dosage: UNK
     Route: 065
  22. WELLBUTRIN SR [Concomitant]
     Active Substance: BUPROPION HYDROCHLORIDE
     Dosage: UNK
     Route: 065
  23. DIPHENHYDRAMINE HYDROCHLORIDE [Concomitant]
     Active Substance: DIPHENHYDRAMINE HYDROCHLORIDE
     Dosage: UNK
     Route: 065
  24. CETIRIZINE HYDROCHLORIDE [Concomitant]
     Active Substance: CETIRIZINE HYDROCHLORIDE
     Dosage: UNK
     Route: 065
  25. PREGABALIN [Concomitant]
     Active Substance: PREGABALIN
     Dosage: UNK
  26. WELLBUTRIN XL [Concomitant]
     Active Substance: BUPROPION HYDROCHLORIDE
     Dosage: UNK

REACTIONS (42)
  - Multifocal motor neuropathy [Unknown]
  - Haemolytic anaemia [Unknown]
  - Musculoskeletal discomfort [Unknown]
  - Tooth fracture [Unknown]
  - Musculoskeletal stiffness [Unknown]
  - Root canal infection [Unknown]
  - Exposure to toxic agent [Recovered/Resolved]
  - Mental disorder [Unknown]
  - Foot fracture [Unknown]
  - Sciatica [Unknown]
  - COVID-19 [Unknown]
  - Therapeutic product effect delayed [Unknown]
  - Infusion related reaction [Unknown]
  - Bronchitis [Not Recovered/Not Resolved]
  - Onychophagia [Unknown]
  - Paranasal sinus discomfort [Unknown]
  - Tooth infection [Unknown]
  - Nasopharyngitis [Recovering/Resolving]
  - Infusion site mass [Unknown]
  - Influenza [Recovering/Resolving]
  - Injection site mass [Unknown]
  - Hypoaesthesia [Unknown]
  - Muscular weakness [Unknown]
  - Injection site pain [Unknown]
  - Infusion site discomfort [Unknown]
  - Infusion site pruritus [Unknown]
  - Rash [Recovering/Resolving]
  - Back pain [Recovered/Resolved]
  - Pain in extremity [Recovered/Resolved]
  - Infusion site pain [Unknown]
  - Myalgia [Unknown]
  - Nausea [Unknown]
  - Migraine [Unknown]
  - Headache [Unknown]
  - Fatigue [Recovering/Resolving]
  - Pruritus [Unknown]
  - Feeling abnormal [Unknown]
  - Paraesthesia [Unknown]
  - Hypopnoea [Unknown]
  - Palpitations [Unknown]
  - Product dose omission issue [Unknown]
  - Product prescribing issue [Unknown]

NARRATIVE: CASE EVENT DATE: 20230706
